FAERS Safety Report 11848210 (Version 1)
Quarter: 2015Q4

REPORT INFORMATION
  Report Type: Report from Study
  Country: PL (occurrence: PL)
  Receive Date: 20151217
  Receipt Date: 20151217
  Transmission Date: 20160305
  Serious: Yes (Hospitalization)
  Sender: FDA-Public Use
  Company Number: PL-BIOGEN-2015BI080574

PATIENT
  Age: 41 Year
  Sex: Female
  Weight: 61 kg

DRUGS (4)
  1. AVONEX [Concomitant]
     Active Substance: INTERFERON BETA-1A
     Route: 030
     Dates: start: 20140227
  2. BIIB033 [Suspect]
     Active Substance: OPICINUMAB
     Indication: OPTIC NEURITIS
     Route: 042
     Dates: start: 20140227
  3. KWETAPLEX [Concomitant]
     Active Substance: QUETIAPINE FUMARATE
     Indication: HYPOMANIA
     Route: 048
     Dates: start: 20150511, end: 20150528
  4. SODIUM VALPROATE [Concomitant]
     Active Substance: VALPROATE SODIUM
     Indication: HYPOMANIA
     Route: 048
     Dates: start: 20150511, end: 20150528

REACTIONS (1)
  - Bipolar I disorder [Recovered/Resolved with Sequelae]

NARRATIVE: CASE EVENT DATE: 20150529
